FAERS Safety Report 10241791 (Version 2)
Quarter: 2014Q2

REPORT INFORMATION
  Report Type: Spontaneous
  Country: DE (occurrence: DE)
  Receive Date: 20140617
  Receipt Date: 20140617
  Transmission Date: 20141212
  Serious: Yes (Life-Threatening, Hospitalization)
  Sender: FDA-Public Use
  Company Number: DE-JNJFOC-20140415970

PATIENT
  Age: 71 Year
  Sex: Male
  Weight: 95 kg

DRUGS (5)
  1. XARELTO [Suspect]
     Indication: EMBOLISM VENOUS
     Route: 048
     Dates: start: 20140311, end: 20140313
  2. XARELTO [Suspect]
     Indication: PULMONARY EMBOLISM
     Route: 048
     Dates: start: 20140311, end: 20140313
  3. TORASEMIDE [Concomitant]
     Route: 048
  4. DELIX PLUS [Concomitant]
     Route: 048
  5. ALLOPURINOL [Concomitant]
     Route: 048

REACTIONS (2)
  - Thoracic haemorrhage [Recovering/Resolving]
  - Shock [Recovering/Resolving]
